FAERS Safety Report 5941227-7 (Version None)
Quarter: 2008Q4

REPORT INFORMATION
  Report Type: 
  Country: None (occurrence: None)
  Receive Date: 20081104
  Receipt Date: 20081027
  Transmission Date: 20090506
  Serious: Yes (Hospitalization)
  Sender: FDA-Public Use
  Company Number: US-GILEAD-2008-0018841

PATIENT
  Sex: Female
  Weight: 59.02 kg

DRUGS (9)
  1. LETAIRIS [Suspect]
     Indication: PULMONARY HYPERTENSION
     Route: 048
     Dates: start: 20080503
  2. DIGITEK [Concomitant]
  3. CITALOPRAM HYDROBROMIDE [Concomitant]
  4. AEROBID [Concomitant]
  5. LEVOTHYROXINE SODIUM [Concomitant]
  6. LASIX [Concomitant]
  7. DICLOFENAC [Concomitant]
  8. VITAMIN D [Concomitant]
  9. VITAMIN A [Concomitant]

REACTIONS (3)
  - DYSPNOEA [None]
  - FLUID RETENTION [None]
  - PULMONARY HYPERTENSION [None]
